FAERS Safety Report 25433387 (Version 1)
Quarter: 2025Q2

REPORT INFORMATION
  Report Type: Spontaneous
  Country: US (occurrence: US)
  Receive Date: 20250613
  Receipt Date: 20250613
  Transmission Date: 20250717
  Serious: Yes (Life-Threatening, Other)
  Sender: ORGANON
  Company Number: US-ALEMBIC-2025SCAL000449

PATIENT
  Age: 39 Year
  Sex: Female

DRUGS (6)
  1. REMERON [Suspect]
     Active Substance: MIRTAZAPINE
  2. VENLAFAXINE [Suspect]
     Active Substance: VENLAFAXINE HYDROCHLORIDE
  3. TIZANIDINE [Suspect]
     Active Substance: TIZANIDINE
  4. TRAZODONE [Suspect]
     Active Substance: TRAZODONE HYDROCHLORIDE
  5. ONDANSETRON [Suspect]
     Active Substance: ONDANSETRON
  6. MIDODRINE [Suspect]
     Active Substance: MIDODRINE

REACTIONS (1)
  - Torsade de pointes [Unknown]
